FAERS Safety Report 25953077 (Version 1)
Quarter: 2025Q4

REPORT INFORMATION
  Report Type: Spontaneous
  Country: CA (occurrence: CA)
  Receive Date: 20251023
  Receipt Date: 20251023
  Transmission Date: 20260117
  Serious: Yes (Hospitalization, Other)
  Sender: TEVA
  Company Number: CA-TEVA-VS-3384311

PATIENT
  Age: 57 Year
  Sex: Male

DRUGS (9)
  1. DULOXETINE HYDROCHLORIDE [Suspect]
     Active Substance: DULOXETINE HYDROCHLORIDE
     Indication: Back pain
     Route: 065
  2. ZOPICLONE [Suspect]
     Active Substance: ZOPICLONE
     Indication: Back pain
     Route: 065
  3. CITALOPRAM HYDROBROMIDE [Suspect]
     Active Substance: CITALOPRAM HYDROBROMIDE
     Indication: Back pain
     Route: 065
  4. ARIPIPRAZOLE [Suspect]
     Active Substance: ARIPIPRAZOLE
     Indication: Back pain
     Dosage: DOSE FORM: NOT SPECIFIED
     Route: 065
  5. QUETIAPINE [Suspect]
     Active Substance: QUETIAPINE
     Indication: Back pain
     Route: 065
  6. MIRTAZAPINE [Suspect]
     Active Substance: MIRTAZAPINE
     Indication: Back pain
     Route: 065
  7. NARCAN [Suspect]
     Active Substance: NALOXONE HYDROCHLORIDE
     Indication: Drug use disorder
     Dosage: NARCAN NASAL SPRAY SINGLE-DOSE, DOSE FORM: SPRAY, METERED DOSE
     Route: 065
  8. NARCAN [Suspect]
     Active Substance: NALOXONE HYDROCHLORIDE
     Indication: Drug use disorder
     Route: 065
  9. BUPRENORPHINE [Suspect]
     Active Substance: BUPRENORPHINE
     Indication: Drug use disorder
     Route: 065

REACTIONS (5)
  - Cognitive disorder [Recovering/Resolving]
  - Substance dependence [Recovering/Resolving]
  - Dementia [Recovering/Resolving]
  - Off label use [Recovering/Resolving]
  - Neurodegenerative disorder [Recovering/Resolving]
